FAERS Safety Report 11096028 (Version 1)
Quarter: 2015Q2

REPORT INFORMATION
  Report Type: Spontaneous
  Country: TR (occurrence: None)
  Receive Date: 20150505
  Receipt Date: 20150505
  Transmission Date: 20150821
  Serious: Yes (Hospitalization)
  Sender: FDA-Public Use
  Company Number: TR-2015VAL000280

PATIENT
  Age: 14 Year
  Sex: Female

DRUGS (1)
  1. CARBAMAZEPINE (CARBAMAZEPINE) UNKNOWN [Suspect]
     Active Substance: CARBAMAZEPINE
     Indication: EPILEPSY

REACTIONS (6)
  - Pyrexia [None]
  - Pleurisy [None]
  - Hyperglycaemia [None]
  - Rash maculo-papular [None]
  - Crepitations [None]
  - Drug reaction with eosinophilia and systemic symptoms [None]
